FAERS Safety Report 9908617 (Version 1)
Quarter: 2014Q1

REPORT INFORMATION
  Report Type: Spontaneous
  Country: US (occurrence: None)
  Receive Date: 20140214
  Receipt Date: 20140214
  Transmission Date: 20141002
  Serious: Yes (Hospitalization)
  Sender: FDA-Public Use
  Company Number: None

PATIENT
  Age: 70 Year
  Sex: Female
  Weight: 121.6 kg

DRUGS (12)
  1. IODIXANOL [Suspect]
     Indication: SCAN WITH CONTRAST
     Dosage: RECENT
     Route: 042
     Dates: start: 20131220
  2. ABILIFY [Concomitant]
  3. ASA [Concomitant]
  4. LOMOTIL [Concomitant]
  5. DEPAKOTE ER [Concomitant]
  6. ENALAPRIL [Concomitant]
  7. ERGOCALCIFEROL [Concomitant]
  8. LASIX [Concomitant]
  9. ACIDOPHILUS [Concomitant]
  10. SYNTHROID [Concomitant]
  11. COZAAR [Concomitant]
  12. JANUME [Concomitant]

REACTIONS (4)
  - Renal failure acute [None]
  - Hypotension [None]
  - Nephropathy toxic [None]
  - Rash [None]
